FAERS Safety Report 16939099 (Version 6)
Quarter: 2021Q4

REPORT INFORMATION
  Report Type: Report from Study
  Country: JP (occurrence: JP)
  Receive Date: 20191020
  Receipt Date: 20211124
  Transmission Date: 20220303
  Serious: Yes (Hospitalization, Other)
  Sender: FDA-Public Use
  Company Number: JP-KYOWAKIRIN-2019AKK016002

PATIENT
  Age: 63 Year
  Sex: Male

DRUGS (18)
  1. ROMIPLOSTIM [Suspect]
     Active Substance: ROMIPLOSTIM
     Indication: Aplastic anaemia
     Dosage: 500 MICROGRAM
     Route: 058
     Dates: start: 20190906, end: 20190906
  2. ROMIPLOSTIM [Suspect]
     Active Substance: ROMIPLOSTIM
     Dosage: 750 MICROGRAM
     Route: 058
     Dates: start: 20190913, end: 20190913
  3. ROMIPLOSTIM [Suspect]
     Active Substance: ROMIPLOSTIM
     Dosage: 1000 MICROGRAM, QWK
     Route: 058
     Dates: start: 20190919, end: 20190926
  4. ROMIPLOSTIM [Suspect]
     Active Substance: ROMIPLOSTIM
     Dosage: 1000 MICROGRAM, QWK
     Route: 058
     Dates: start: 20191025, end: 20191227
  5. CYCLOSPORINE [Concomitant]
     Active Substance: CYCLOSPORINE
     Indication: Aplastic anaemia
     Dosage: UNK
     Route: 048
  6. ELTROMBOPAG OLAMINE [Concomitant]
     Active Substance: ELTROMBOPAG OLAMINE
     Indication: Aplastic anaemia
     Dosage: UNK
     Route: 048
  7. DIFLUCAN [Concomitant]
     Active Substance: FLUCONAZOLE
     Indication: Infection prophylaxis
     Dosage: UNK
     Route: 048
  8. ZOLPIDEM TARTRATE [Concomitant]
     Active Substance: ZOLPIDEM TARTRATE
     Indication: Product used for unknown indication
     Dosage: UNK
     Route: 048
  9. ZINC [Concomitant]
     Active Substance: ZINC
     Indication: Hypozincaemia
     Dosage: UNK
     Route: 048
  10. CYANOCOBALAMIN [Concomitant]
     Active Substance: CYANOCOBALAMIN
     Indication: Vitamin B12 deficiency
     Dosage: UNK
     Route: 065
  11. CHLORPHENIRAMINE MALEATE [Concomitant]
     Active Substance: CHLORPHENIRAMINE MALEATE
     Indication: Product used for unknown indication
     Dosage: UNK
     Route: 065
  12. PETROLATUM [Concomitant]
     Active Substance: PETROLATUM
     Indication: Product used for unknown indication
     Dosage: UNK
     Route: 061
  13. TRANEXAMIC ACID [Concomitant]
     Active Substance: TRANEXAMIC ACID
     Indication: Mediastinal haematoma
     Dosage: UNK
     Route: 065
  14. CARBAZOCHROME SODIUM SULFONATE [Concomitant]
     Active Substance: CARBAZOCHROME SODIUM SULFONATE
     Indication: Mediastinal haematoma
     Dosage: UNK
     Route: 065
  15. TRANSAMIN [Concomitant]
     Active Substance: TRANEXAMIC ACID
     Indication: Mediastinal haematoma
     Dosage: UNK
     Route: 048
  16. CALONAL [Concomitant]
     Active Substance: ACETAMINOPHEN
     Indication: Infection prophylaxis
     Dosage: UNK
     Route: 048
  17. HARVONI [Concomitant]
     Active Substance: LEDIPASVIR\SOFOSBUVIR
     Indication: Chronic hepatitis C
     Dosage: UNK
     Route: 048
  18. DEXTROSE\SODIUM CHLORIDE\SODIUM LACTATE [Concomitant]
     Active Substance: DEXTROSE\SODIUM CHLORIDE\SODIUM LACTATE
     Indication: Mediastinal haematoma
     Dosage: UNK
     Route: 065

REACTIONS (2)
  - Mediastinal haematoma [Recovered/Resolved]
  - Pollakiuria [Not Recovered/Not Resolved]

NARRATIVE: CASE EVENT DATE: 20191002
